FAERS Safety Report 5856194-4 (Version None)
Quarter: 2008Q3

REPORT INFORMATION
  Report Type: 
  Country: None (occurrence: None)
  Receive Date: 20080825
  Receipt Date: 20080818
  Transmission Date: 20090109
  Serious: Yes (Other)
  Sender: FDA-Public Use
  Company Number: A0743094A

PATIENT
  Age: 39 Year
  Sex: Male

DRUGS (8)
  1. LOVAZA [Suspect]
     Dosage: 4G PER DAY
     Route: 048
     Dates: start: 20080805, end: 20080807
  2. SYMLIN [Concomitant]
  3. LANTUS [Concomitant]
  4. NOVOLOG [Concomitant]
  5. REGLAN [Concomitant]
  6. PRILOSEC [Concomitant]
  7. BENICAR [Concomitant]
  8. UNSPECIFIED MEDICATION [Concomitant]

REACTIONS (5)
  - ASTHENIA [None]
  - CIRCULATORY COLLAPSE [None]
  - NAUSEA [None]
  - PRURITUS [None]
  - URTICARIA [None]
